FAERS Safety Report 4653019-X (Version None)
Quarter: 2005Q2

REPORT INFORMATION
  Report Type: 
  Country: None (occurrence: None)
  Receive Date: 20050505
  Receipt Date: 20040123
  Transmission Date: 20051028
  Serious: Yes (Other)
  Sender: FDA-Public Use
  Company Number: ES-BRISTOL-MYERS SQUIBB COMPANY-12485405

PATIENT
  Age: 51 Year
  Sex: Female
  Weight: 74 kg

DRUGS (5)
  1. ATAZANAVIR [Suspect]
     Indication: HIV INFECTION
     Dosage: INTERRUPTED ON 23-JAN-2004.
     Route: 048
     Dates: start: 20031222, end: 20040123
  2. PRAVASTATIN [Concomitant]
     Dates: start: 20021101
  3. EFAVIRENZ [Concomitant]
  4. TENOFOVIR [Concomitant]
  5. ABACAVIR [Concomitant]

REACTIONS (1)
  - ANGINA PECTORIS [None]
